FAERS Safety Report 4895905-1 (Version None)
Quarter: 2006Q1

REPORT INFORMATION
  Report Type: 
  Country: None (occurrence: None)
  Receive Date: 20060130
  Receipt Date: 20050825
  Transmission Date: 20060701
  Serious: Yes (Hospitalization, Other)
  Sender: FDA-Public Use
  Company Number: DE-MERCK-0508DEU00189

PATIENT
  Age: 57 Year
  Sex: Female

DRUGS (6)
  1. VIOXX [Suspect]
     Indication: POLYMYALGIA RHEUMATICA
     Route: 048
     Dates: start: 20000101
  2. VIOXX [Suspect]
     Route: 048
     Dates: start: 20000228, end: 20040901
  3. VIOXX [Suspect]
     Indication: PAIN IN EXTREMITY
     Route: 048
     Dates: start: 20000101
  4. VIOXX [Suspect]
     Route: 048
     Dates: start: 20000228, end: 20040901
  5. LEVOTHYROXINE SODIUM AND POTASSIUM IODIDE [Concomitant]
     Route: 065
     Dates: start: 19750101
  6. METHYLPREDNISOLONE [Concomitant]
     Indication: MUSCULOSKELETAL PAIN
     Route: 065
     Dates: start: 20000201

REACTIONS (59)
  - ABDOMINAL DISCOMFORT [None]
  - ALOPECIA [None]
  - ANGINA PECTORIS [None]
  - ANXIETY [None]
  - ARRHYTHMIA [None]
  - ASTIGMATISM [None]
  - BALANCE DISORDER [None]
  - BLOOD DISORDER [None]
  - BLOOD PRESSURE INCREASED [None]
  - BRONCHITIS [None]
  - CARDIAC DISORDER [None]
  - CARDIAC FAILURE [None]
  - CARDIOVASCULAR DISORDER [None]
  - CATARACT [None]
  - CEREBROVASCULAR ACCIDENT [None]
  - CHILLS [None]
  - CHOLELITHIASIS [None]
  - COLITIS ULCERATIVE [None]
  - DEPRESSION [None]
  - DISTURBANCE IN ATTENTION [None]
  - DIZZINESS [None]
  - DYSAESTHESIA [None]
  - DYSPEPSIA [None]
  - DYSPNOEA [None]
  - FATIGUE [None]
  - FLATULENCE [None]
  - FLUID RETENTION [None]
  - GASTRITIS [None]
  - GASTROINTESTINAL DISORDER [None]
  - HEADACHE [None]
  - HEART RATE IRREGULAR [None]
  - HYPERMETROPIA [None]
  - HYPERSENSITIVITY [None]
  - INFLUENZA [None]
  - INSOMNIA [None]
  - KERATOCONJUNCTIVITIS SICCA [None]
  - LIVER FUNCTION TEST ABNORMAL [None]
  - MALAISE [None]
  - MICTURITION DISORDER [None]
  - MOUTH ULCERATION [None]
  - MUSCLE SPASMS [None]
  - NASOPHARYNGITIS [None]
  - NAUSEA [None]
  - OEDEMA [None]
  - PAIN [None]
  - PALPITATIONS [None]
  - PHARYNGEAL OEDEMA [None]
  - PRESBYOPIA [None]
  - PRURITUS [None]
  - RASH [None]
  - RENAL FAILURE [None]
  - RESTLESS LEGS SYNDROME [None]
  - SUPRAVENTRICULAR EXTRASYSTOLES [None]
  - SYNCOPE [None]
  - TINNITUS [None]
  - TREMOR [None]
  - VERTEBROBASILAR INSUFFICIENCY [None]
  - VISION BLURRED [None]
  - WEIGHT INCREASED [None]
